FAERS Safety Report 21779196 (Version 1)
Quarter: 2022Q4

REPORT INFORMATION
  Report Type: Spontaneous
  Country: GB (occurrence: GB)
  Receive Date: 20221226
  Receipt Date: 20221226
  Transmission Date: 20230112
  Serious: Yes (Other)
  Sender: FDA-Public Use
  Company Number: GB-MHRA-MED-202212211726516530-FTMWQ

PATIENT
  Age: 9 Year
  Sex: Female

DRUGS (1)
  1. VERMOX [Suspect]
     Active Substance: MEBENDAZOLE
     Indication: Product used for unknown indication
     Route: 065
     Dates: start: 20220715

REACTIONS (1)
  - Renal injury [Recovered/Resolved]

NARRATIVE: CASE EVENT DATE: 20220717
